FAERS Safety Report 18188109 (Version 1)
Quarter: 2020Q3

REPORT INFORMATION
  Report Type: Spontaneous
  Country: US (occurrence: US)
  Receive Date: 20200824
  Receipt Date: 20200824
  Transmission Date: 20201103
  Serious: Yes (Hospitalization)
  Sender: FDA-Public Use
  Company Number: US-VERTEX PHARMACEUTICALS-2020-016575

PATIENT
  Age: 63 Year
  Sex: Female

DRUGS (2)
  1. CAYSTON [Concomitant]
     Active Substance: AZTREONAM
     Dosage: 75 MILLIGRAM, TID
  2. TRIKAFTA [Suspect]
     Active Substance: ELEXACAFTOR\IVACAFTOR\TEZACAFTOR
     Indication: CYSTIC FIBROSIS
     Dosage: (100MG ELEXACAFTOR/ 50MG TEZACAFTOR/ 75MG IVACAFTOR AND 150MG IVACAFTOR),  BID
     Route: 048
     Dates: start: 20200110

REACTIONS (2)
  - Pneumonia [Unknown]
  - Infection [Unknown]

NARRATIVE: CASE EVENT DATE: 202001
